FAERS Safety Report 5161329-5 (Version None)
Quarter: 2006Q4

REPORT INFORMATION
  Report Type: 
  Country: None (occurrence: None)
  Receive Date: 20061121
  Receipt Date: 20061106
  Transmission Date: 20070319
  Serious: Yes (Other)
  Sender: FDA-Public Use
  Company Number: 2006138154

PATIENT
  Age: 35 Year
  Sex: Female

DRUGS (1)
  1. DOSTINEX [Suspect]
     Indication: SUPPRESSED LACTATION
     Dosage: ORAL
     Route: 048

REACTIONS (1)
  - BRADYCARDIA [None]
